FAERS Safety Report 5761903-9 (Version None)
Quarter: 2008Q2

REPORT INFORMATION
  Report Type: 
  Country: None (occurrence: None)
  Receive Date: 20080606
  Receipt Date: 20080529
  Transmission Date: 20081010
  Serious: Yes (Other)
  Sender: FDA-Public Use
  Company Number: CN-PFIZER INC-2008047137

PATIENT
  Age: 57 Year
  Sex: Male

DRUGS (9)
  1. LIPITOR [Suspect]
     Indication: HYPERLIPIDAEMIA
     Route: 048
     Dates: start: 20080420, end: 20080428
  2. HERBAL PREPARATION [Concomitant]
     Route: 042
  3. ALL OTHER THERAPEUTIC PRODUCTS [Concomitant]
     Route: 042
  4. AMINOPHYLLINE [Concomitant]
     Route: 042
  5. FUROSEMIDE [Concomitant]
  6. SPIRONOLACTONE [Concomitant]
  7. ASPIRIN [Concomitant]
  8. BETALOC [Concomitant]
     Route: 048
  9. OMEPRAZOLE [Concomitant]

REACTIONS (9)
  - ALANINE AMINOTRANSFERASE INCREASED [None]
  - ASPARTATE AMINOTRANSFERASE INCREASED [None]
  - GAMMA-GLUTAMYLTRANSFERASE INCREASED [None]
  - HEPATIC FUNCTION ABNORMAL [None]
  - LOW DENSITY LIPOPROTEIN INCREASED [None]
  - NAUSEA [None]
  - PROTEIN URINE [None]
  - RENAL IMPAIRMENT [None]
  - VOMITING [None]
